FAERS Safety Report 7722629-5 (Version None)
Quarter: 2011Q3

REPORT INFORMATION
  Report Type: 
  Country: None (occurrence: None)
  Receive Date: 20110831
  Receipt Date: 20110826
  Transmission Date: 20111222
  Serious: Yes (Hospitalization, Other)
  Sender: FDA-Public Use
  Company Number: GB-MERCK-1108GBR00126

PATIENT
  Age: 78 Year
  Sex: Male

DRUGS (2)
  1. CLOZAPINE [Suspect]
     Indication: SCHIZOPHRENIA
     Route: 065
     Dates: start: 20070706, end: 20110723
  2. SINEMET [Suspect]
     Route: 048

REACTIONS (3)
  - PARKINSON'S DISEASE [None]
  - FALL [None]
  - PSYCHOTIC DISORDER [None]
